FAERS Safety Report 8188849-3 (Version None)
Quarter: 2012Q1

REPORT INFORMATION
  Report Type: 
  Country: None (occurrence: None)
  Receive Date: 20120306
  Receipt Date: 20120227
  Transmission Date: 20120608
  Serious: Yes (Other)
  Sender: FDA-Public Use
  Company Number: US-ELI_LILLY_AND_COMPANY-US201202008014

PATIENT
  Sex: Female

DRUGS (14)
  1. BYETTA [Suspect]
     Indication: TYPE 2 DIABETES MELLITUS
     Dosage: 10 UG, BID
     Route: 058
  2. BYETTA [Suspect]
     Dosage: 5 UG, BID
     Route: 058
  3. COUMADIN [Concomitant]
     Dosage: 5 MG, QD
     Dates: start: 19950101
  4. LANOXIN [Concomitant]
     Dosage: 12.5 MG, BID
     Route: 048
  5. SYNTHROID [Concomitant]
     Dosage: 150 UG, QOD
     Route: 048
  6. SYNTHROID [Concomitant]
     Indication: THYROID DISORDER
     Dosage: 175 UG, QOD
     Route: 048
  7. VITAMIN D [Concomitant]
     Dosage: UNK
  8. PROAIR HFA [Concomitant]
     Dosage: UNK, PRN
  9. DIOVAN [Concomitant]
     Indication: CARDIAC DISORDER
     Dosage: 80 MG, QD
     Route: 048
  10. CALTRATE                           /00751519/ [Concomitant]
     Dosage: UNK
  11. BYETTA [Suspect]
     Dosage: 10 UG, BID
     Route: 058
     Dates: end: 20120224
  12. COREG [Concomitant]
     Dosage: 25 MG, BID
     Route: 048
  13. MULTI-VITAMIN [Concomitant]
     Dosage: UNK
  14. NITROGLYCERIN SPRAY [Concomitant]
     Indication: CARDIAC DISORDER
     Dosage: UNK

REACTIONS (13)
  - FEELING ABNORMAL [None]
  - RESPIRATORY DISORDER [None]
  - PULMONARY FIBROSIS [None]
  - PRURITUS [None]
  - HEADACHE [None]
  - PALPITATIONS [None]
  - FATIGUE [None]
  - PAIN [None]
  - INTENTIONAL DRUG MISUSE [None]
  - BALANCE DISORDER [None]
  - STENT PLACEMENT [None]
  - TRANSIENT ISCHAEMIC ATTACK [None]
  - CARDIAC FAILURE CONGESTIVE [None]
